FAERS Safety Report 9158394 (Version 2)
Quarter: 2013Q1

REPORT INFORMATION
  Report Type: Report from Study
  Country: US (occurrence: US)
  Receive Date: 20130312
  Receipt Date: 20130328
  Transmission Date: 20140127
  Serious: Yes (Other)
  Sender: FDA-Public Use
  Company Number: US-ABBOTT-13P-163-1060347-00

PATIENT
  Age: 51 Year
  Sex: Male

DRUGS (3)
  1. HUMIRA [Suspect]
     Indication: PSORIATIC ARTHROPATHY
     Dates: start: 2008, end: 2011
  2. HUMIRA [Suspect]
     Indication: PSORIASIS
  3. METHOTREXATE [Suspect]
     Indication: PRODUCT USED FOR UNKNOWN INDICATION

REACTIONS (8)
  - Hepatic cirrhosis [Not Recovered/Not Resolved]
  - Liver disorder [Recovering/Resolving]
  - Anaemia [Recovering/Resolving]
  - Large intestine polyp [Recovered/Resolved]
  - Varices oesophageal [Recovering/Resolving]
  - Skin ulcer [Recovering/Resolving]
  - Staphylococcal infection [Recovered/Resolved]
  - Psoriasis [Recovering/Resolving]
